FAERS Safety Report 4869987-7 (Version None)
Quarter: 2005Q4

REPORT INFORMATION
  Report Type: 
  Country: None (occurrence: None)
  Receive Date: 20051230
  Receipt Date: 20051207
  Transmission Date: 20060501
  Serious: Yes (Hospitalization, Other)
  Sender: FDA-Public Use
  Company Number: FR-ABBOTT-05P-056-0319052-00

PATIENT
  Age: 53 Year
  Sex: Female

DRUGS (3)
  1. SEVORANE LIQUID FOR INHALATION [Suspect]
     Indication: ANAESTHESIA
     Route: 055
     Dates: start: 20030214, end: 20030214
  2. ALFENTANIL [Suspect]
     Indication: ANAESTHESIA
     Route: 042
     Dates: start: 20030214, end: 20030214
  3. PROPOFOL [Suspect]
     Indication: ANAESTHESIA
     Route: 042
     Dates: start: 20030214, end: 20030214

REACTIONS (4)
  - CHOLESTASIS [None]
  - HEPATIC FAILURE [None]
  - HEPATITIS [None]
  - LIVER FUNCTION TEST ABNORMAL [None]
